FAERS Safety Report 23615552 (Version 1)
Quarter: 2024Q1

REPORT INFORMATION
  Report Type: Spontaneous
  Country: AE (occurrence: AE)
  Receive Date: 20240311
  Receipt Date: 20240311
  Transmission Date: 20240410
  Serious: Yes (Other)
  Sender: FDA-Public Use
  Company Number: AE-ABBVIE-5670428

PATIENT
  Sex: Female

DRUGS (7)
  1. PROGESTERONE [Suspect]
     Active Substance: PROGESTERONE
     Indication: Hormone replacement therapy
     Dosage: TIME INTERVAL: 0.33333333 DAYS: AT DAY 3
     Route: 067
  2. PROGESTERONE [Suspect]
     Active Substance: PROGESTERONE
     Dosage: AT 13 HOURS ON DAY 0
     Route: 067
  3. PROGESTERONE [Suspect]
     Active Substance: PROGESTERONE
     Dosage: AT 21 HOURS ON DAY 0
     Route: 067
  4. PROGESTERONE [Suspect]
     Active Substance: PROGESTERONE
     Dosage: DOSE INCREASED
     Route: 067
  5. DUPHASTON [Suspect]
     Active Substance: DYDROGESTERONE
     Indication: Hormone replacement therapy
     Dosage: DAY 3
     Route: 065
  6. ESTRADIOL [Concomitant]
     Active Substance: ESTRADIOL
     Indication: Hormone therapy
     Dosage: ON DAY 3
     Route: 048
  7. ESTRADIOL [Concomitant]
     Active Substance: ESTRADIOL
     Indication: Hormone therapy
     Dosage: (2 ? 2 MG)
     Route: 048

REACTIONS (2)
  - Abortion spontaneous [Unknown]
  - Maternal exposure during pregnancy [Unknown]
